FAERS Safety Report 9521176 (Version 1)
Quarter: 2013Q3

REPORT INFORMATION
  Report Type: Spontaneous
  Country: US (occurrence: US)
  Receive Date: 20130913
  Receipt Date: 20130913
  Transmission Date: 20140515
  Serious: Yes (Other)
  Sender: FDA-Public Use
  Company Number: US-JNJFOC-20130903674

PATIENT
  Age: 73 Year
  Sex: Male
  Weight: 94.8 kg

DRUGS (5)
  1. XARELTO [Suspect]
     Indication: CEREBROVASCULAR ACCIDENT PROPHYLAXIS
     Route: 048
     Dates: start: 201308
  2. XARELTO [Suspect]
     Indication: ATRIAL FIBRILLATION
     Route: 048
     Dates: start: 201308
  3. CHONDROITIN [Concomitant]
     Indication: ARTHRITIS
     Dosage: STOPPED IN SEPTEMBER
     Route: 065
     Dates: start: 201305
  4. GLUCOSAMINE [Concomitant]
     Indication: ARTHRITIS
     Dosage: STOPPED IN SEPTEMBER
     Route: 065
     Dates: start: 201305
  5. MOVE FREE [Concomitant]
     Indication: ARTHRITIS
     Dosage: STOPPED IN SEPTEMBER
     Route: 048
     Dates: start: 201305

REACTIONS (3)
  - Blood pressure increased [Not Recovered/Not Resolved]
  - Dizziness [Not Recovered/Not Resolved]
  - Balance disorder [Not Recovered/Not Resolved]
